FAERS Safety Report 6371995-4 (Version None)
Quarter: 2009Q3

REPORT INFORMATION
  Report Type: 
  Country: None (occurrence: None)
  Receive Date: 20090917
  Receipt Date: 20090904
  Transmission Date: 20100115
  Serious: Yes (Hospitalization)
  Sender: FDA-Public Use
  Company Number: ADR16472009

PATIENT
  Age: 88 Year
  Sex: Female

DRUGS (8)
  1. CITALOPRAM [Suspect]
     Indication: DEPRESSION
     Dosage: 10 MG/DAY, ORAL
     Route: 048
     Dates: start: 20051219, end: 20060126
  2. BENDROFLUMETHIAZIDE [Concomitant]
  3. FYBOGEL [Concomitant]
  4. ALVERINE CITRATE [Concomitant]
  5. METOCLOPRAMIDE [Concomitant]
  6. VITAMIN B-12 [Concomitant]
  7. ALBUTEROL [Concomitant]
  8. HYPROMELLOSE [Concomitant]

REACTIONS (2)
  - HYPOKALAEMIA [None]
  - HYPONATRAEMIA [None]
